FAERS Safety Report 16378035 (Version 2)
Quarter: 2019Q3

REPORT INFORMATION
  Report Type: Spontaneous
  Country: US (occurrence: US)
  Receive Date: 20190531
  Receipt Date: 20190708
  Transmission Date: 20191004
  Serious: Yes (Death, Hospitalization, Other)
  Sender: FDA-Public Use
  Company Number: US-PFIZER INC-2019230011

PATIENT
  Age: 50 Year
  Sex: Male

DRUGS (1)
  1. MORPHINE SULFATE. [Suspect]
     Active Substance: MORPHINE SULFATE
     Indication: SHOULDER ARTHROPLASTY
     Dosage: UNK UNK, 4X/DAY (*20-40 MG 4 TIMES DAILY)
     Dates: start: 1997, end: 2004

REACTIONS (3)
  - Drug dependence [Fatal]
  - Overdose [Fatal]
  - Drug abuse [Fatal]

NARRATIVE: CASE EVENT DATE: 2001
